FAERS Safety Report 9252961 (Version 1)
Quarter: 2013Q1

REPORT INFORMATION
  Report Type: Spontaneous
  Country: US (occurrence: None)
  Receive Date: 20130305
  Receipt Date: 20130305
  Transmission Date: 20140127
  Serious: Yes (Hospitalization, Other)
  Sender: FDA-Public Use
  Company Number: 163-21880-12081989

PATIENT
  Age: 79 Year
  Sex: Male

DRUGS (3)
  1. REVLIMID [Suspect]
     Indication: PLASMA CELL MYELOMA
     Dosage: 20 IN 28 D
     Route: 048
     Dates: start: 20110711
  2. DEXAMETHASONE (DEXAMETHASONE) [Concomitant]
  3. LOVENOX (HEPARIN-FRACTION, SODIUM SALT) (INJECTION) [Concomitant]

REACTIONS (3)
  - Pseudomonas infection [None]
  - Pancytopenia [None]
  - Pneumonia [None]
